FAERS Safety Report 9143621 (Version 3)
Quarter: 2013Q2

REPORT INFORMATION
  Report Type: Spontaneous
  Country: FI (occurrence: FI)
  Receive Date: 20130306
  Receipt Date: 20130516
  Transmission Date: 20140414
  Serious: Yes (Other)
  Sender: FDA-Public Use
  Company Number: FI-ROCHE-1197634

PATIENT
  Age: 52 Year
  Sex: Female

DRUGS (5)
  1. AVASTIN [Suspect]
     Indication: ENDOMETRIAL ADENOCARCINOMA
     Route: 065
     Dates: start: 20110928, end: 20120112
  2. AVASTIN [Suspect]
     Route: 065
     Dates: start: 20120605
  3. BISOPROLOL [Concomitant]
     Route: 065
  4. LETROZOLE [Concomitant]
     Route: 065
  5. KLEXANE [Concomitant]
     Route: 058

REACTIONS (2)
  - Wrist fracture [Recovered/Resolved]
  - Fall [Unknown]
